FAERS Safety Report 7527890-8 (Version None)
Quarter: 2011Q2

REPORT INFORMATION
  Report Type: 
  Country: None (occurrence: None)
  Receive Date: 20110607
  Receipt Date: 20110601
  Transmission Date: 20111010
  Serious: Yes (Life-Threatening)
  Sender: FDA-Public Use
  Company Number: IT-ASTRAZENECA-2011SE33877

PATIENT
  Age: 54 Year
  Sex: Female
  Weight: 67 kg

DRUGS (4)
  1. CARDICOR [Concomitant]
     Indication: HYPERTENSION
     Route: 048
     Dates: start: 20010615
  2. FASLODEX [Suspect]
     Indication: BREAST CANCER METASTATIC
     Route: 030
     Dates: start: 20110414, end: 20110601
  3. LAPATINIB [Suspect]
     Indication: BREAST CANCER METASTATIC
     Dosage: DAILY
     Route: 048
     Dates: start: 20110414, end: 20110601
  4. TRIATEC HCT [Concomitant]
     Indication: HYPERTENSION
     Route: 048
     Dates: start: 20010615

REACTIONS (1)
  - EJECTION FRACTION DECREASED [None]
